FAERS Safety Report 18088329 (Version 1)
Quarter: 2020Q3

REPORT INFORMATION
  Report Type: Spontaneous
  Country: TW (occurrence: TW)
  Receive Date: 20200729
  Receipt Date: 20200729
  Transmission Date: 20201103
  Serious: Yes (Other)
  Sender: FDA-Public Use
  Company Number: TW-PFIZER INC-2020284940

PATIENT
  Sex: Female

DRUGS (1)
  1. FARLUTAL [Suspect]
     Active Substance: MEDROXYPROGESTERONE ACETATE
     Dosage: 1 DF, 1X/DAY
     Route: 048
     Dates: start: 2020

REACTIONS (5)
  - Anaemia [Unknown]
  - End stage renal disease [Unknown]
  - Haematuria [Unknown]
  - Decreased appetite [Unknown]
  - Chromaturia [Unknown]

NARRATIVE: CASE EVENT DATE: 2020
